FAERS Safety Report 24248910 (Version 7)
Quarter: 2025Q2

REPORT INFORMATION
  Report Type: Spontaneous
  Country: CA (occurrence: CA)
  Receive Date: 20240826
  Receipt Date: 20250401
  Transmission Date: 20250717
  Serious: Yes (Other)
  Sender: PFIZER
  Company Number: CA-PFIZER INC-202400207000

PATIENT
  Age: 20 Year
  Sex: Male
  Weight: 85.6 kg

DRUGS (6)
  1. RUXIENCE [Suspect]
     Active Substance: RITUXIMAB-PVVR
     Indication: Neuromyelitis optica spectrum disorder
     Route: 042
     Dates: start: 20240821
  2. RUXIENCE [Suspect]
     Active Substance: RITUXIMAB-PVVR
     Route: 042
     Dates: start: 20240905
  3. RUXIENCE [Suspect]
     Active Substance: RITUXIMAB-PVVR
     Route: 042
     Dates: start: 20250304
  4. RUXIENCE [Suspect]
     Active Substance: RITUXIMAB-PVVR
     Route: 042
     Dates: start: 20250318
  5. MIRABEGRON [Concomitant]
     Active Substance: MIRABEGRON
     Indication: Neurogenic bladder
     Dosage: 50 MG, DAILY
  6. VITAMIN D NOS [Concomitant]
     Active Substance: CHOLECALCIFEROL\ERGOCALCIFEROL
     Dosage: 2000 IU, DAILY

REACTIONS (16)
  - Pruritus [Recovered/Resolved]
  - Ear swelling [Recovered/Resolved]
  - Erythema [Recovered/Resolved]
  - Abdominal rigidity [Recovered/Resolved]
  - Abdominal pain [Recovered/Resolved]
  - Rash erythematous [Recovered/Resolved]
  - Nausea [Recovered/Resolved]
  - Heart rate increased [Recovered/Resolved]
  - Hyperhidrosis [Recovered/Resolved]
  - Dyspnoea exertional [Recovered/Resolved]
  - Chest discomfort [Recovered/Resolved]
  - Feeling hot [Unknown]
  - Hypersensitivity [Unknown]
  - Infusion site rash [Unknown]
  - Throat tightness [Recovered/Resolved]
  - Off label use [Unknown]

NARRATIVE: CASE EVENT DATE: 20240101
